FAERS Safety Report 7831162-1 (Version None)
Quarter: 2011Q4

REPORT INFORMATION
  Report Type: 
  Country: None (occurrence: None)
  Receive Date: 20111021
  Receipt Date: 20111012
  Transmission Date: 20120403
  Serious: Yes (Other)
  Sender: FDA-Public Use
  Company Number: CA-JNJFOC-20111007896

PATIENT
  Sex: Female
  Weight: 125 kg

DRUGS (11)
  1. REMICADE [Suspect]
     Indication: CROHN'S DISEASE
     Route: 042
     Dates: start: 20111007
  2. SOLU-CORTEF [Concomitant]
     Indication: PREMEDICATION
  3. SYNTHROID [Concomitant]
  4. OMEPRAZOLE [Concomitant]
  5. HYDROCHLOROTHIAZIDE [Concomitant]
  6. SLOW-K [Concomitant]
  7. HUMALOG [Concomitant]
  8. BENADRYL [Concomitant]
     Indication: PREMEDICATION
  9. REMICADE [Suspect]
     Route: 042
     Dates: start: 20090901, end: 20101101
  10. ATENOLOL [Concomitant]
  11. REMICADE [Suspect]
     Route: 042
     Dates: start: 20110908

REACTIONS (5)
  - DYSPNOEA [None]
  - ANXIETY [None]
  - MUSCLE SPASMS [None]
  - INFUSION RELATED REACTION [None]
  - FLUSHING [None]
